FAERS Safety Report 21208612 (Version 1)
Quarter: 2022Q3

REPORT INFORMATION
  Report Type: Spontaneous
  Country: FR (occurrence: FR)
  Receive Date: 20220812
  Receipt Date: 20220812
  Transmission Date: 20221027
  Serious: Yes (Other)
  Sender: FDA-Public Use
  Company Number: None

PATIENT
  Age: 40 Year
  Sex: Male

DRUGS (5)
  1. ALPRAZOLAM [Suspect]
     Active Substance: ALPRAZOLAM
     Dosage: 3 DF, AS NEEDED  (2 TO 3 TABLETS WHEN NEEDED)
     Route: 048
  2. LYRICA [Suspect]
     Active Substance: PREGABALIN
     Dosage: UNK
     Route: 048
     Dates: start: 2022
  3. VIAGRA [Suspect]
     Active Substance: SILDENAFIL CITRATE
     Dosage: UNK
     Route: 048
  4. COCAINE [Suspect]
     Active Substance: COCAINE
     Dosage: UNK
     Route: 045
     Dates: start: 2014
  5. BUTYROLACTONE [Suspect]
     Active Substance: BUTYROLACTONE
     Dosage: 2 ML PER HOUR
     Route: 048
     Dates: start: 2017

REACTIONS (2)
  - Intentional product misuse [Recovering/Resolving]
  - Drug dependence [Recovering/Resolving]
